FAERS Safety Report 12313605 (Version 2)
Quarter: 2016Q2

REPORT INFORMATION
  Report Type: Spontaneous
  Country: JP (occurrence: JP)
  Receive Date: 20160428
  Receipt Date: 20160606
  Transmission Date: 20160815
  Serious: Yes (Life-Threatening, Hospitalization, Other)
  Sender: FDA-Public Use
  Company Number: JP-PFIZER INC-2016227119

PATIENT
  Age: 66 Year
  Sex: Male

DRUGS (13)
  1. TICLOPIDINE [Concomitant]
     Active Substance: TICLOPIDINE
     Indication: CEREBRAL INFARCTION
     Dosage: 100 MG, 2X/DAY
     Route: 048
  2. FOSRENOL [Concomitant]
     Active Substance: LANTHANUM CARBONATE
     Indication: HYPERPHOSPHATAEMIA
     Dosage: 500 MG, 2X/DAY
     Route: 048
     Dates: start: 20140709, end: 20151231
  3. LYRICA [Suspect]
     Active Substance: PREGABALIN
     Indication: BACK PAIN
     Dosage: 50 MG, 2X/DAY
     Route: 048
     Dates: start: 20150818, end: 20151214
  4. LYRICA [Suspect]
     Active Substance: PREGABALIN
     Indication: PAIN IN EXTREMITY
     Dosage: 100 MG, 2X/DAY
     Route: 048
     Dates: start: 20151215, end: 20151231
  5. CERCINE [Concomitant]
     Active Substance: DIAZEPAM
     Indication: ANXIETY DISORDER
     Dosage: 2 MG, AS NEEDED
     Route: 048
  6. CALTAN [Concomitant]
     Active Substance: CALCIUM CARBONATE
     Indication: HYPERPHOSPHATAEMIA
     Dosage: 500 MG, 3X/DAY
     Route: 048
     Dates: end: 20151231
  7. REGPARA [Concomitant]
     Active Substance: CINACALCET HYDROCHLORIDE
     Indication: HYPERPARATHYROIDISM SECONDARY
     Dosage: 25 MG, 1X/DAY
     Route: 048
     Dates: start: 20150916, end: 20151231
  8. LYRICA [Suspect]
     Active Substance: PREGABALIN
     Indication: SPINAL COLUMN STENOSIS
  9. RISUMIC [Concomitant]
     Active Substance: AMEZINIUM METILSULFATE
     Indication: PROCEDURAL HYPOTENSION
     Dosage: 10 MG, AT THE TIME OF DIALYSIS
     Route: 048
  10. VOLTAREN [Concomitant]
     Active Substance: DICLOFENAC SODIUM
     Indication: BACK PAIN
     Dosage: 25 MG, AS NEEDED
     Route: 054
     Dates: end: 20160113
  11. VOLTAREN [Concomitant]
     Active Substance: DICLOFENAC SODIUM
     Indication: SPINAL COLUMN STENOSIS
  12. VOLTAREN [Concomitant]
     Active Substance: DICLOFENAC SODIUM
     Indication: PAIN IN EXTREMITY
  13. NEXIUM [Concomitant]
     Active Substance: ESOMEPRAZOLE MAGNESIUM
     Indication: ULCER
     Dosage: 20 MG, 1X/DAY
     Route: 048
     Dates: start: 20141010

REACTIONS (22)
  - Altered state of consciousness [Recovered/Resolved]
  - Blood fibrinogen increased [Unknown]
  - Blood triglycerides increased [Unknown]
  - C-reactive protein increased [Unknown]
  - Seizure [Not Recovered/Not Resolved]
  - Aspartate aminotransferase increased [Unknown]
  - Liver disorder [Recovered/Resolved]
  - Disorientation [Unknown]
  - Blood pressure diastolic increased [Unknown]
  - Abnormal behaviour [Unknown]
  - Restlessness [Unknown]
  - Toxicity to various agents [Unknown]
  - Thrombocytopenia [Recovered/Resolved]
  - Blood alkaline phosphatase increased [Unknown]
  - Blood pressure systolic increased [Unknown]
  - Pyrexia [Recovered/Resolved]
  - Hallucination, auditory [Unknown]
  - Hallucination [Unknown]
  - Oxygen saturation decreased [Unknown]
  - Alanine aminotransferase increased [Unknown]
  - Gamma-glutamyltransferase increased [Unknown]
  - Movement disorder [Unknown]

NARRATIVE: CASE EVENT DATE: 201512
